FAERS Safety Report 19483342 (Version 1)
Quarter: 2021Q3

REPORT INFORMATION
  Report Type: Spontaneous
  Country: US (occurrence: US)
  Receive Date: 20210701
  Receipt Date: 20210701
  Transmission Date: 20211014
  Serious: Yes (Other)
  Sender: FDA-Public Use
  Company Number: US-PFIZER INC-2021762194

PATIENT

DRUGS (1)
  1. CELEBREX [Suspect]
     Active Substance: CELECOXIB
     Indication: ARTHRITIS
     Dosage: UNK

REACTIONS (5)
  - Gait disturbance [Unknown]
  - Mass [Unknown]
  - Gastric disorder [Not Recovered/Not Resolved]
  - Pain [Unknown]
  - Ankylosing spondylitis [Unknown]
